FAERS Safety Report 5010383-X (Version None)
Quarter: 2006Q2

REPORT INFORMATION
  Report Type: 
  Country: None (occurrence: None)
  Receive Date: 20060523
  Receipt Date: 20060516
  Transmission Date: 20061013
  Serious: Yes (Hospitalization)
  Sender: FDA-Public Use
  Company Number: CIP06001083

PATIENT
  Age: 41 Year
  Sex: Male

DRUGS (4)
  1. DANTRIUM [Suspect]
     Indication: MUSCLE SPASTICITY
     Dosage: 100 MG FOUR TIMES DAILY, ORAL
     Route: 048
     Dates: start: 19700101, end: 20050601
  2. DANTRIUM [Suspect]
     Indication: MUSCLE SPASTICITY
     Dosage: 100 MG FOUR TIMES DAILY, ORAL
     Route: 048
     Dates: start: 20050101
  3. DANTROLENE SODIUM [Suspect]
     Indication: MUSCLE SPASTICITY
     Dosage: 100 MG FOUR TIMES DAILY, ORAL
     Route: 048
     Dates: start: 20050601, end: 20050101
  4. VALIUM [Concomitant]

REACTIONS (6)
  - BLADDER CANCER [None]
  - CHROMATURIA [None]
  - INFECTION [None]
  - NEPHROLITHIASIS [None]
  - PHARMACEUTICAL PRODUCT COMPLAINT [None]
  - RASH [None]
